FAERS Safety Report 5517663-X (Version None)
Quarter: 2007Q4

REPORT INFORMATION
  Report Type: 
  Country: None (occurrence: None)
  Receive Date: 20071114
  Receipt Date: 20071106
  Transmission Date: 20080405
  Serious: Yes (Other)
  Sender: FDA-Public Use
  Company Number: JP-BOEHRINGER INGELHEIM PHARMACEUTICALS, INC.-2007-BP-24395YA

PATIENT
  Sex: Male

DRUGS (3)
  1. TAMSULOSIN HCL [Suspect]
     Route: 048
  2. SERTRALINE HYDROCHLORIDE [Concomitant]
     Route: 065
  3. DEPAS [Concomitant]
     Route: 065

REACTIONS (1)
  - DIABETES INSIPIDUS [None]
